FAERS Safety Report 16171280 (Version 2)
Quarter: 2019Q2

REPORT INFORMATION
  Report Type: Spontaneous
  Country: US (occurrence: US)
  Receive Date: 20190408
  Receipt Date: 20190503
  Transmission Date: 20190711
  Serious: No
  Sender: FDA-Public Use
  Company Number: US-ASTRAZENECA-2019SE50411

PATIENT
  Age: 13 Month
  Sex: Female
  Weight: 10.4 kg

DRUGS (2)
  1. SYNAGIS [Suspect]
     Active Substance: PALIVIZUMAB
     Indication: LUNG DISORDER
     Dosage: SUBSEQUENT DOSES ON 14-DEC-2018, 16-JAN-2019, 15-FEB-2019, AND 20-MAR-2019 (1.6 ML)
     Route: 030
     Dates: start: 20181116
  2. SYNAGIS [Suspect]
     Active Substance: PALIVIZUMAB
     Indication: LUNG DISORDER
     Route: 030
     Dates: start: 201801, end: 2018

REACTIONS (8)
  - Rhinorrhoea [Unknown]
  - Rash erythematous [Recovered/Resolved]
  - Body temperature increased [Recovered/Resolved]
  - Faeces soft [Unknown]
  - Cough [Unknown]
  - Nasopharyngitis [Unknown]
  - Urinary tract infection [Recovered/Resolved]
  - Diarrhoea [Recovered/Resolved]

NARRATIVE: CASE EVENT DATE: 201812
